FAERS Safety Report 25901014 (Version 1)
Quarter: 2025Q4

REPORT INFORMATION
  Report Type: Spontaneous
  Country: JP (occurrence: JP)
  Receive Date: 20251009
  Receipt Date: 20251009
  Transmission Date: 20260117
  Serious: Yes (Other)
  Sender: RANBAXY
  Company Number: JP-SUN PHARMACEUTICAL INDUSTRIES LTD-2025R1-528745

PATIENT
  Age: 23 Year
  Sex: Male

DRUGS (1)
  1. TEGRETOL [Suspect]
     Active Substance: CARBAMAZEPINE
     Indication: Epilepsy
     Dosage: UNK
     Route: 048

REACTIONS (5)
  - Rectal cancer [Recovered/Resolved]
  - Anaemia [Unknown]
  - Faecal occult blood positive [Unknown]
  - Haemorrhoids [Unknown]
  - Constipation [Unknown]
